FAERS Safety Report 10102871 (Version 2)
Quarter: 2014Q2

REPORT INFORMATION
  Report Type: Spontaneous
  Country: US (occurrence: US)
  Receive Date: 20140424
  Receipt Date: 20140424
  Transmission Date: 20141212
  Serious: Yes (Hospitalization)
  Sender: FDA-Public Use
  Company Number: US-BRISTOL-MYERS SQUIBB COMPANY-19963917

PATIENT
  Age: 82 Year
  Sex: Female
  Weight: 58.96 kg

DRUGS (4)
  1. ELIQUIS [Suspect]
     Dosage: INCREASED TO 5MG BID
     Route: 048
     Dates: start: 20131111
  2. ATORVASTATIN [Concomitant]
     Dosage: 1 TABLET
     Route: 048
  3. HYDROCHLOROTHIAZIDE [Concomitant]
     Dosage: TABLETS
     Route: 048
  4. ROPINIROLE [Concomitant]
     Dosage: TABLET
     Route: 048

REACTIONS (2)
  - Embolic stroke [Recovering/Resolving]
  - Contusion [Unknown]
